FAERS Safety Report 5166256-5 (Version None)
Quarter: 2006Q4

REPORT INFORMATION
  Report Type: 
  Country: None (occurrence: None)
  Receive Date: 20060830
  Receipt Date: 20060520
  Transmission Date: 20070319
  Serious: No
  Sender: FDA-Public Use
  Company Number: 221559

PATIENT
  Age: 45 Year
  Sex: Male

DRUGS (12)
  1. XOLAIR [Suspect]
     Indication: ASTHMA
     Dosage: 375 MG Q2W
     Dates: start: 20040901
  2. PULMICORT [Concomitant]
  3. ADVAIR DISKUS 100/50 [Concomitant]
  4. SINGULAIR (MONTELEUKAST SODIUM) [Concomitant]
  5. ALLEGRA [Concomitant]
  6. MAXAIR [Concomitant]
  7. GUAIFENESIN [Concomitant]
  8. EFFEXOR [Concomitant]
  9. ACIPHEX [Concomitant]
  10. METHADONE HCL [Concomitant]
  11. PERCOCET [Concomitant]
  12. WELLBUTRIN [Concomitant]

REACTIONS (1)
  - ANAEMIA [None]
